FAERS Safety Report 8042979-5 (Version None)
Quarter: 2012Q1

REPORT INFORMATION
  Report Type: 
  Country: None (occurrence: None)
  Receive Date: 20120112
  Receipt Date: 20120104
  Transmission Date: 20120608
  Serious: Yes (Disabling)
  Sender: FDA-Public Use
  Company Number: PHEH2011US011756

PATIENT
  Sex: Female
  Weight: 106.58 kg

DRUGS (5)
  1. GILENYA [Suspect]
     Indication: MULTIPLE SCLEROSIS
     Dosage: 0.5 MG, QD
     Route: 048
     Dates: start: 20110507, end: 20111213
  2. PROZAC [Concomitant]
     Dosage: UNK UKN, UNK
     Dates: start: 20110629
  3. ZANAFLEX [Concomitant]
     Dosage: UNK UKN, UNK
     Route: 048
     Dates: start: 20110629
  4. DETROL                                  /USA/ [Concomitant]
     Dosage: UNK UKN, UNK
     Route: 048
     Dates: start: 20101101
  5. REQUIP [Concomitant]
     Dosage: UNK UKN, UNK
     Dates: start: 20100818

REACTIONS (8)
  - AGITATION [None]
  - PERSONALITY DISORDER [None]
  - AGGRESSION [None]
  - MANIA [None]
  - HEMIPARESIS [None]
  - IMPULSE-CONTROL DISORDER [None]
  - IRRITABILITY [None]
  - MALAISE [None]
